FAERS Safety Report 6101182-6 (Version None)
Quarter: 2009Q1

REPORT INFORMATION
  Report Type: 
  Country: None (occurrence: None)
  Receive Date: 20090304
  Receipt Date: 20000623
  Transmission Date: 20090719
  Serious: No
  Sender: FDA-Public Use
  Company Number: US-ABBOTT-08P-163-0455610-00

PATIENT

DRUGS (2)
  1. VALPROATE SODIUM [Suspect]
     Indication: CONVULSION
  2. TRILEPTIL [Concomitant]
     Indication: CONVULSION

REACTIONS (3)
  - COLITIS [None]
  - NAUSEA [None]
  - VOMITING [None]
